FAERS Safety Report 7968686-2 (Version None)
Quarter: 2011Q4

REPORT INFORMATION
  Report Type: 
  Country: None (occurrence: None)
  Receive Date: 20111209
  Receipt Date: 20111205
  Transmission Date: 20120403
  Serious: Yes (Other)
  Sender: FDA-Public Use
  Company Number: DE-GLAXOSMITHKLINE-D0073629A

PATIENT
  Sex: Male
  Weight: 61 kg

DRUGS (1)
  1. MALARONE [Suspect]
     Indication: MALARIA
     Dosage: 1050MG FOUR TIMES PER DAY
     Route: 048
     Dates: start: 20111124, end: 20111124

REACTIONS (4)
  - C-REACTIVE PROTEIN INCREASED [None]
  - ASTHENIA [None]
  - OVERDOSE [None]
  - THROMBOCYTOPENIA [None]
